FAERS Safety Report 8001987-0 (Version None)
Quarter: 2011Q4

REPORT INFORMATION
  Report Type: 
  Country: None (occurrence: None)
  Receive Date: 20111220
  Receipt Date: 20111201
  Transmission Date: 20120403
  Serious: Yes (Hospitalization, Other)
  Sender: FDA-Public Use
  Company Number: JPI-P-017340

PATIENT
  Age: 60 Year
  Sex: Male

DRUGS (13)
  1. CYCLOBENZAPRINE HCL [Concomitant]
  2. METHYLPHENIDATE HCL [Concomitant]
  3. ATORVASTATIN CALCIUM [Concomitant]
  4. PENTAZOCINE LACTATE [Concomitant]
  5. CLOPIDOGREL BISULFATE [Concomitant]
  6. LISINOPRIL [Concomitant]
  7. HYDROCODONE BITARTRATE + ACETAMINOPHEN [Suspect]
     Indication: PAIN
     Dosage: (UNKNOWN), UNKNOWN
  8. PREDNISONE TAB [Concomitant]
  9. DIAZEPAM [Suspect]
     Indication: INSOMNIA
     Dosage: (UNKNOWN, NOT TAKEN VERY OFTEN/ONLY WHEN NECESSARY), UNKNOWN
  10. GABAPENTIN [Concomitant]
  11. XYREM [Suspect]
     Indication: NARCOLEPSY
     Dosage: 4.5 GM (2.25 GM, 2 IN 1 D), ORAL (UNKNOWN), ORAL 9 GM (4.5 GM, 2 IN 1 D), ORAL
     Route: 048
     Dates: start: 20110922
  12. XYREM [Suspect]
     Indication: NARCOLEPSY
     Dosage: 4.5 GM (2.25 GM, 2 IN 1 D), ORAL (UNKNOWN), ORAL 9 GM (4.5 GM, 2 IN 1 D), ORAL
     Route: 048
     Dates: start: 20080324, end: 20110911
  13. XYREM [Suspect]
     Indication: NARCOLEPSY
     Dosage: 4.5 GM (2.25 GM, 2 IN 1 D), ORAL (UNKNOWN), ORAL 9 GM (4.5 GM, 2 IN 1 D), ORAL
     Route: 048
     Dates: start: 20070604

REACTIONS (15)
  - TREMOR [None]
  - TRANSIENT ISCHAEMIC ATTACK [None]
  - LOSS OF CONSCIOUSNESS [None]
  - MEMORY IMPAIRMENT [None]
  - AXILLARY PAIN [None]
  - HYPOPNOEA [None]
  - WHITE BLOOD CELL COUNT INCREASED [None]
  - HEAVY EXPOSURE TO ULTRAVIOLET LIGHT [None]
  - CONFUSIONAL STATE [None]
  - WOUND INFECTION [None]
  - BLOOD PRESSURE DECREASED [None]
  - LYMPHADENOPATHY [None]
  - CELLULITIS [None]
  - DEHYDRATION [None]
  - AGGRESSION [None]
